FAERS Safety Report 7988056-0 (Version None)
Quarter: 2011Q4

REPORT INFORMATION
  Report Type: 
  Country: None (occurrence: None)
  Receive Date: 20111216
  Receipt Date: 20101203
  Transmission Date: 20120403
  Serious: No
  Sender: FDA-Public Use
  Company Number: US-BRISTOL-MYERS SQUIBB COMPANY-15424419

PATIENT
  Age: 3 Decade
  Sex: Female

DRUGS (3)
  1. REGLAN [Concomitant]
  2. ABILIFY [Suspect]
  3. PRISTIQ [Concomitant]

REACTIONS (2)
  - LIVER FUNCTION TEST ABNORMAL [None]
  - INSOMNIA [None]
